FAERS Safety Report 6827641-6 (Version None)
Quarter: 2010Q3

REPORT INFORMATION
  Report Type: 
  Country: None (occurrence: None)
  Receive Date: 20100709
  Receipt Date: 20070124
  Transmission Date: 20110219
  Serious: No
  Sender: FDA-Public Use
  Company Number: US-PFIZER INC-2007005234

PATIENT
  Sex: Female
  Weight: 45.81 kg

DRUGS (9)
  1. CHANTIX [Suspect]
     Indication: SMOKING CESSATION THERAPY
     Route: 048
     Dates: start: 20070101
  2. ZYRTEC [Concomitant]
     Route: 048
  3. NORVASC [Concomitant]
     Route: 048
  4. TRIAMTERENE [Concomitant]
     Route: 048
  5. PLAVIX [Concomitant]
     Route: 048
  6. TRAZODONE [Concomitant]
     Route: 048
  7. KLONOPIN [Concomitant]
     Route: 048
  8. OXAPROZIN [Concomitant]
     Route: 048
  9. RANITIDINE [Concomitant]
     Indication: GASTROOESOPHAGEAL REFLUX DISEASE
     Route: 048

REACTIONS (4)
  - GASTROOESOPHAGEAL REFLUX DISEASE [None]
  - MALAISE [None]
  - RETCHING [None]
  - VOMITING [None]
